FAERS Safety Report 7374715-X (Version None)
Quarter: 2011Q1

REPORT INFORMATION
  Report Type: 
  Country: None (occurrence: None)
  Receive Date: 20110325
  Receipt Date: 20100930
  Transmission Date: 20110831
  Serious: No
  Sender: FDA-Public Use
  Company Number: US-MYLANLABS-2010S1015955

PATIENT
  Age: 45 Year
  Sex: Male

DRUGS (3)
  1. FENTANYL-100 [Suspect]
     Indication: PAIN
     Dosage: Q 72 HRS
     Route: 062
     Dates: start: 20090327, end: 20090427
  2. FENTANYL-100 [Suspect]
     Indication: ARTHRALGIA
     Dosage: Q 72 HRS
     Route: 062
     Dates: start: 20090327, end: 20090427
  3. FENTANYL-100 [Suspect]
     Indication: BACK PAIN
     Dosage: Q 72 HRS
     Route: 062
     Dates: start: 20090327, end: 20090427

REACTIONS (7)
  - DIARRHOEA [None]
  - CONSTIPATION [None]
  - NAUSEA [None]
  - HEADACHE [None]
  - MUSCLE SPASMS [None]
  - ABDOMINAL PAIN UPPER [None]
  - DIZZINESS [None]
